FAERS Safety Report 4612893-3 (Version None)
Quarter: 2005Q1

REPORT INFORMATION
  Report Type: 
  Country: None (occurrence: None)
  Receive Date: 20050318
  Receipt Date: 20050315
  Transmission Date: 20050727
  Serious: Yes (Other)
  Sender: FDA-Public Use
  Company Number: US-GLAXOSMITHKLINE-A0549839A

PATIENT
  Age: 59 Year
  Sex: Female

DRUGS (6)
  1. COREG [Suspect]
     Indication: HYPERTENSION
     Route: 048
     Dates: start: 20050309
  2. ALTACE [Concomitant]
  3. PREMPRO [Concomitant]
  4. PRAVACHOL [Concomitant]
  5. FOSAMAX [Concomitant]
  6. PREVACID [Concomitant]

REACTIONS (1)
  - URINARY INCONTINENCE [None]
